FAERS Safety Report 24301526 (Version 1)
Quarter: 2024Q3

REPORT INFORMATION
  Report Type: Spontaneous
  Country: IE (occurrence: IE)
  Receive Date: 20240910
  Receipt Date: 20240910
  Transmission Date: 20241017
  Serious: Yes (Other)
  Sender: BIOGEN
  Company Number: IE-BIOGEN-2024BI01281324

PATIENT
  Age: 21 Year
  Sex: Female

DRUGS (1)
  1. SPINRAZA [Suspect]
     Active Substance: NUSINERSEN
     Indication: Product used for unknown indication
     Route: 050
     Dates: end: 202402

REACTIONS (2)
  - Pulmonary embolism [Unknown]
  - Humerus fracture [Unknown]

NARRATIVE: CASE EVENT DATE: 20240401
